FAERS Safety Report 5356366-1 (Version None)
Quarter: 2007Q2

REPORT INFORMATION
  Report Type: 
  Country: None (occurrence: None)
  Receive Date: 20070530
  Receipt Date: 20061004
  Transmission Date: 20071010
  Serious: Yes (Hospitalization)
  Sender: FDA-Public Use
  Company Number: US200609005092

PATIENT
  Sex: Female
  Weight: 259 kg

DRUGS (1)
  1. ZYPREXA [Suspect]
     Dates: end: 20000201

REACTIONS (5)
  - BLOOD CHOLESTEROL ABNORMAL [None]
  - DIABETES MELLITUS [None]
  - DIABETIC NEUROPATHY [None]
  - HYPERTENSION [None]
  - VISION BLURRED [None]
